FAERS Safety Report 9525105 (Version 2)
Quarter: 2013Q3

REPORT INFORMATION
  Report Type: Spontaneous
  Country: BR (occurrence: BR)
  Receive Date: 20130916
  Receipt Date: 20130916
  Transmission Date: 20140515
  Serious: Yes (Other)
  Sender: FDA-Public Use
  Company Number: BR-SANOFI-AVENTIS-2013SA001145

PATIENT
  Age: 30 Year
  Sex: Female
  Weight: 48.9 kg

DRUGS (2)
  1. CLEXANE [Suspect]
     Indication: PROPHYLAXIS
     Dosage: STRENGTH: 40 MG
     Route: 058
     Dates: start: 20121210, end: 2013
  2. FOLIC ACID [Concomitant]
     Indication: SUPPLEMENTATION THERAPY
     Dosage: STRENGTH: 5 MG
     Route: 048
     Dates: start: 20121120

REACTIONS (5)
  - Amniotic fluid volume decreased [Recovered/Resolved]
  - HELLP syndrome [Recovered/Resolved]
  - Pre-eclampsia [Recovered/Resolved]
  - Haematoma [Recovered/Resolved]
  - Exposure during pregnancy [Unknown]
